FAERS Safety Report 17581245 (Version 1)
Quarter: 2020Q1

REPORT INFORMATION
  Report Type: Spontaneous
  Country: US (occurrence: US)
  Receive Date: 20200325
  Receipt Date: 20200325
  Transmission Date: 20200409
  Serious: No
  Sender: FDA-Public Use
  Company Number: None

PATIENT

DRUGS (1)
  1. BASAGLAR [Suspect]
     Active Substance: INSULIN GLARGINE

REACTIONS (10)
  - Nausea [None]
  - Pruritus [None]
  - Respiratory distress [None]
  - Injection site pain [None]
  - Dizziness [None]
  - Vision blurred [None]
  - Rash [None]
  - Blood potassium increased [None]
  - Muscle spasms [None]
  - Headache [None]

NARRATIVE: CASE EVENT DATE: 20190101
